FAERS Safety Report 6045758-3 (Version None)
Quarter: 2009Q1

REPORT INFORMATION
  Report Type: 
  Country: None (occurrence: None)
  Receive Date: 20090121
  Receipt Date: 20090113
  Transmission Date: 20090719
  Serious: Yes (Other)
  Sender: FDA-Public Use
  Company Number: VE-ABBOTT-08P-178-0489768-00

PATIENT
  Age: 52 Year
  Sex: Female

DRUGS (1)
  1. HUMIRA [Suspect]
     Indication: RHEUMATOID ARTHRITIS
     Route: 058
     Dates: start: 20080401, end: 20080901

REACTIONS (4)
  - ABDOMINAL PAIN [None]
  - BONE NEOPLASM MALIGNANT [None]
  - INGUINAL HERNIA [None]
  - METASTATIC CARCINOID TUMOUR [None]
